FAERS Safety Report 13081223 (Version 1)
Quarter: 2017Q1

REPORT INFORMATION
  Report Type: Spontaneous
  Country: DE (occurrence: DE)
  Receive Date: 20170103
  Receipt Date: 20170103
  Transmission Date: 20170428
  Serious: Yes (Congenital Anomaly)
  Sender: FDA-Public Use
  Company Number: DE-MYLANLABS-2016M1058099

PATIENT

DRUGS (1)
  1. VENLAFAXINE [Suspect]
     Active Substance: VENLAFAXINE HYDROCHLORIDE
     Indication: DEPRESSION
     Dosage: 150 MG, QD
     Route: 064
     Dates: start: 20151023, end: 20160717

REACTIONS (3)
  - Ureteric stenosis [Not Recovered/Not Resolved]
  - Congenital ureterocele [Not Recovered/Not Resolved]
  - Congenital megaureter [Not Recovered/Not Resolved]
